FAERS Safety Report 8480793-7 (Version None)
Quarter: 2012Q2

REPORT INFORMATION
  Report Type: 
  Country: None (occurrence: None)
  Receive Date: 20120626
  Receipt Date: 20120626
  Transmission Date: 20120825
  Serious: Yes (Other)
  Sender: FDA-Public Use
  Company Number: None

PATIENT
  Age: 28 Year
  Sex: Female
  Weight: 90.7194 kg

DRUGS (2)
  1. SONATA [Suspect]
     Indication: INSOMNIA
     Dosage: 10 MG DAILY PO
     Route: 048
     Dates: start: 20070101, end: 20071231
  2. ZALEPLON [Suspect]
     Indication: INSOMNIA
     Dosage: 10 MG DAILY PO
     Route: 048
     Dates: start: 20080101, end: 20081201

REACTIONS (4)
  - IMPAIRED DRIVING ABILITY [None]
  - DEPRESSED LEVEL OF CONSCIOUSNESS [None]
  - SOMNAMBULISM [None]
  - HALLUCINATION [None]
